FAERS Safety Report 7781441-1 (Version None)
Quarter: 2011Q3

REPORT INFORMATION
  Report Type: 
  Country: None (occurrence: None)
  Receive Date: 20110927
  Receipt Date: 20110919
  Transmission Date: 20111222
  Serious: Yes (Other)
  Sender: FDA-Public Use
  Company Number: PHHY2011MA77715

PATIENT
  Age: 22 Year
  Sex: Female

DRUGS (1)
  1. PREDNISONE [Suspect]
     Indication: PYODERMA GANGRENOSUM
     Dosage: 2 MG/KG

REACTIONS (2)
  - DEPRESSION [None]
  - SUICIDE ATTEMPT [None]
